FAERS Safety Report 25517634 (Version 3)
Quarter: 2025Q3

REPORT INFORMATION
  Report Type: Spontaneous
  Country: US (occurrence: US)
  Receive Date: 20250704
  Receipt Date: 20250829
  Transmission Date: 20251020
  Serious: Yes (Other)
  Sender: ALEXION PHARMACEUTICALS
  Company Number: US-AstraZeneca-CH-00897560AP

PATIENT
  Sex: Male

DRUGS (2)
  1. AIRSUPRA [Suspect]
     Active Substance: ALBUTEROL SULFATE\BUDESONIDE
     Indication: Wheezing
     Route: 065
  2. BREZTRI [Suspect]
     Active Substance: BUDESONIDE\FORMOTEROL\GLYCOPYRROLATE
     Indication: Wheezing
     Route: 065

REACTIONS (5)
  - Choking [Unknown]
  - Oral mucosal blistering [Unknown]
  - Off label use [Unknown]
  - Drug ineffective [Unknown]
  - Drug delivery system issue [Unknown]
